FAERS Safety Report 13614506 (Version 1)
Quarter: 2017Q2

REPORT INFORMATION
  Report Type: Report from Study
  Country: None (occurrence: US)
  Receive Date: 20170606
  Receipt Date: 20170606
  Transmission Date: 20170830
  Serious: Yes (Other)
  Sender: FDA-Public Use
  Company Number: US-ABBVIE-16K-163-1764294-00

PATIENT
  Sex: Male

DRUGS (5)
  1. ISOTRETINOIN [Concomitant]
     Active Substance: ISOTRETINOIN
     Indication: PSORIASIS
  2. HUMIRA [Interacting]
     Active Substance: ADALIMUMAB
     Indication: PSORIASIS
  3. HUMIRA [Suspect]
     Active Substance: ADALIMUMAB
     Indication: PSORIASIS
     Route: 058
     Dates: start: 2016, end: 201612
  4. TRAMADOL. [Interacting]
     Active Substance: TRAMADOL
     Indication: PAIN
     Route: 065
  5. METHOTREXATE. [Concomitant]
     Active Substance: METHOTREXATE
     Indication: PSORIASIS

REACTIONS (8)
  - Cellulitis [Recovering/Resolving]
  - Neck pain [Not Recovered/Not Resolved]
  - Musculoskeletal pain [Not Recovered/Not Resolved]
  - Cognitive disorder [Recovered/Resolved]
  - Memory impairment [Recovered/Resolved]
  - Asthenia [Recovering/Resolving]
  - Musculoskeletal disorder [Not Recovered/Not Resolved]
  - Communication issue [Recovered/Resolved]

NARRATIVE: CASE EVENT DATE: 2016
